FAERS Safety Report 7670210-9 (Version None)
Quarter: 2011Q3

REPORT INFORMATION
  Report Type: 
  Country: None (occurrence: None)
  Receive Date: 20110808
  Receipt Date: 20110729
  Transmission Date: 20111222
  Serious: Yes (Other)
  Sender: FDA-Public Use
  Company Number: US-RB-021348-11

PATIENT
  Age: 25 Year
  Sex: Female

DRUGS (2)
  1. SUBOXONE [Suspect]
     Indication: DRUG DEPENDENCE
     Dosage: SUBLINGUAL FILM
     Route: 060
     Dates: start: 20110101, end: 20110701
  2. SUBOXONE [Suspect]
     Indication: DRUG DEPENDENCE
     Dosage: TAPERED TO 2 MG DAILY
     Route: 060
     Dates: end: 20110101

REACTIONS (21)
  - INTENTIONAL OVERDOSE [None]
  - DRUG WITHDRAWAL SYNDROME [None]
  - THERAPEUTIC RESPONSE DECREASED [None]
  - NASOPHARYNGITIS [None]
  - SOMNOLENCE [None]
  - MUSCLE TWITCHING [None]
  - DIZZINESS [None]
  - RENAL PAIN [None]
  - UNDERDOSE [None]
  - AGITATION [None]
  - PANIC ATTACK [None]
  - MALAISE [None]
  - TREMOR [None]
  - APATHY [None]
  - INCREASED UPPER AIRWAY SECRETION [None]
  - THROAT IRRITATION [None]
  - INFLUENZA [None]
  - NAUSEA [None]
  - CONVULSION [None]
  - YAWNING [None]
  - SUBSTANCE ABUSE [None]
